FAERS Safety Report 8209903-3 (Version None)
Quarter: 2012Q1

REPORT INFORMATION
  Report Type: 
  Country: None (occurrence: None)
  Receive Date: 20120314
  Receipt Date: 20120306
  Transmission Date: 20120608
  Serious: Yes (Other)
  Sender: FDA-Public Use
  Company Number: CHPA2012FR004488

PATIENT
  Age: 56 Year
  Sex: Male

DRUGS (5)
  1. NICOTINE [Suspect]
     Dosage: 14 MG, QD
     Route: 062
  2. PLAVIX [Concomitant]
  3. NICOTINE [Suspect]
     Indication: SMOKING CESSATION THERAPY
     Dosage: 7 MG, UNK
     Route: 062
     Dates: start: 20120303
  4. ASPIRIN [Concomitant]
  5. ATORVASTATIN [Concomitant]

REACTIONS (1)
  - ERYTHEMA [None]
